FAERS Safety Report 25456795 (Version 2)
Quarter: 2025Q3

REPORT INFORMATION
  Report Type: Spontaneous
  Country: US (occurrence: US)
  Receive Date: 20250619
  Receipt Date: 20250722
  Transmission Date: 20251021
  Serious: Yes (Hospitalization)
  Sender: SANOFI AVENTIS
  Company Number: US-SA-2025SA173020

PATIENT
  Sex: Female
  Weight: 91.156 kg

DRUGS (7)
  1. DUPIXENT [Suspect]
     Active Substance: DUPILUMAB
     Indication: Dermatitis atopic
     Dosage: 300 MG, QOW
     Route: 058
     Dates: end: 202506
  2. FAMOTIDINE [Concomitant]
     Active Substance: FAMOTIDINE
  3. MUPIROCIN [Concomitant]
     Active Substance: MUPIROCIN
  4. CLOBETASOL PROPIONATE [Concomitant]
     Active Substance: CLOBETASOL PROPIONATE
  5. VTAMA [Concomitant]
     Active Substance: TAPINAROF
  6. METFORMIN [Concomitant]
     Active Substance: METFORMIN HYDROCHLORIDE
  7. HYDROXYZINE [Concomitant]
     Active Substance: HYDROXYZINE HYDROCHLORIDE

REACTIONS (11)
  - Drug hypersensitivity [Unknown]
  - Rash vesicular [Unknown]
  - Gait disturbance [Unknown]
  - Product administered at inappropriate site [Unknown]
  - Tremor [Unknown]
  - Dysstasia [Unknown]
  - Myalgia [Unknown]
  - Pruritus [Not Recovered/Not Resolved]
  - Injection site pain [Unknown]
  - Rash [Recovering/Resolving]
  - Arthralgia [Unknown]

NARRATIVE: CASE EVENT DATE: 20250501
